FAERS Safety Report 7579557-8 (Version None)
Quarter: 2011Q2

REPORT INFORMATION
  Report Type: 
  Country: None (occurrence: None)
  Receive Date: 20110629
  Receipt Date: 20110622
  Transmission Date: 20111010
  Serious: Yes (Death, Hospitalization)
  Sender: FDA-Public Use
  Company Number: ES-JNJFOC-20110611992

PATIENT
  Sex: Male

DRUGS (3)
  1. METHOTREXATE [Concomitant]
  2. SIMPONI [Suspect]
     Indication: ILL-DEFINED DISORDER
     Route: 058
  3. STEROIDS NOS [Concomitant]

REACTIONS (1)
  - SEPSIS [None]
